FAERS Safety Report 8477792-8 (Version None)
Quarter: 2012Q2

REPORT INFORMATION
  Report Type: 
  Country: None (occurrence: None)
  Receive Date: 20120626
  Receipt Date: 20120626
  Transmission Date: 20120825
  Serious: Yes (Life-Threatening, Hospitalization)
  Sender: FDA-Public Use
  Company Number: None

PATIENT
  Age: 98 Year
  Sex: Male
  Weight: 85.9 kg

DRUGS (1)
  1. LISINOPRIL [Suspect]
     Indication: HYPERTENSION
     Dosage: 10 MG EVERY DAY PO
     Route: 048
     Dates: start: 20111030, end: 20111120

REACTIONS (6)
  - CHEST PAIN [None]
  - NAUSEA [None]
  - HAEMATURIA [None]
  - ANGIOEDEMA [None]
  - OROPHARYNGEAL PAIN [None]
  - INCREASED UPPER AIRWAY SECRETION [None]
